FAERS Safety Report 4985102-3 (Version None)
Quarter: 2006Q1

REPORT INFORMATION
  Report Type: 
  Country: None (occurrence: None)
  Receive Date: 20060303
  Receipt Date: 20020505
  Transmission Date: 20060701
  Serious: Yes (Hospitalization)
  Sender: FDA-Public Use
  Company Number: PHEH2002US04660

PATIENT
  Age: 25 Year
  Sex: Female

DRUGS (2)
  1. NEORAL [Suspect]
     Indication: DERMATITIS ATOPIC
     Dosage: 275 MG, QD, ORAL
     Route: 048
     Dates: start: 20020315, end: 20020518
  2. ALLEGRA [Concomitant]

REACTIONS (3)
  - APHASIA [None]
  - HERPES VIRUS INFECTION [None]
  - LEUKOENCEPHALOPATHY [None]
